FAERS Safety Report 13801448 (Version 1)
Quarter: 2017Q3

REPORT INFORMATION
  Report Type: Spontaneous
  Country: FR (occurrence: FR)
  Receive Date: 20170727
  Receipt Date: 20170727
  Transmission Date: 20171127
  Serious: Yes (Hospitalization)
  Sender: FDA-Public Use
  Company Number: FR-JNJFOC-20170720988

PATIENT
  Age: 57 Year
  Sex: Female

DRUGS (6)
  1. XARELTO [Suspect]
     Active Substance: RIVAROXABAN
     Indication: PULMONARY EMBOLISM
     Route: 048
     Dates: start: 20170424, end: 20170606
  2. PREDNISOLONE. [Concomitant]
     Active Substance: PREDNISOLONE
     Route: 065
     Dates: end: 20170528
  3. EXACYL [Concomitant]
     Active Substance: TRANEXAMIC ACID
     Dosage: WITH SWITCH TO ELECTRIC SYRINGE PUMP AT 1 G/8 HOURS
     Route: 042
  4. XARELTO [Suspect]
     Active Substance: RIVAROXABAN
     Indication: PULMONARY EMBOLISM
     Route: 048
     Dates: start: 20170520, end: 2017
  5. PREDNISOLONE. [Concomitant]
     Active Substance: PREDNISOLONE
     Route: 065
     Dates: start: 2017, end: 20170709
  6. OCTAPLEX [Concomitant]
     Active Substance: COAGULATION FACTOR IX HUMAN\COAGULATION FACTOR VII HUMAN\COAGULATION FACTOR X HUMAN\PROTEIN C\PROTEIN S HUMAN\PROTHROMBIN
     Dosage: 1 ML/KG
     Route: 065

REACTIONS (1)
  - Ileal ulcer [Recovering/Resolving]

NARRATIVE: CASE EVENT DATE: 20170512
